FAERS Safety Report 16403796 (Version 1)
Quarter: 2019Q2

REPORT INFORMATION
  Report Type: Spontaneous
  Country: UA (occurrence: UA)
  Receive Date: 20190607
  Receipt Date: 20190607
  Transmission Date: 20190711
  Serious: Yes (Other)
  Sender: FDA-Public Use
  Company Number: UA-ROCHE-2333263

PATIENT
  Age: 24 Year
  Sex: Male

DRUGS (1)
  1. CYMEVENE [GANCICLOVIR] [Suspect]
     Active Substance: GANCICLOVIR
     Indication: NEPHRITIC SYNDROME
     Route: 042
     Dates: start: 20180929, end: 20180929

REACTIONS (1)
  - Body temperature increased [Recovered/Resolved]

NARRATIVE: CASE EVENT DATE: 20180929
